FAERS Safety Report 24258071 (Version 1)
Quarter: 2024Q3

REPORT INFORMATION
  Report Type: Spontaneous
  Country: GB (occurrence: GB)
  Receive Date: 20240828
  Receipt Date: 20240828
  Transmission Date: 20241017
  Serious: Yes (Other)
  Sender: ADVANZ PHARMA
  Company Number: None

PATIENT

DRUGS (10)
  1. PREDNISOLONE [Suspect]
     Active Substance: PREDNISOLONE
     Dosage: 20 MG, QD (FOUR TO BE TAKEN EACH DAY - PXD ON TTO 07/03/24 (REDUCING COURSE DOWN TO 20MG OM) - PT CO
  2. FLUCONAZOLE [Concomitant]
     Active Substance: FLUCONAZOLE
     Dosage: 1 DOSAGE FORM, QD (50MG CAPSULES 1 OM FOR 3 DAYS - PT FINISHED COURSE)
  3. FAMOTIDINE [Concomitant]
     Active Substance: FAMOTIDINE
     Dosage: 1 DOSAGE FORM, QD (20 MG TABLETS ONE TO BE TAKEN IN THE MORNING - PXD ON TTO 07/03/24)
  4. CETIRIZINE [Concomitant]
     Active Substance: CETIRIZINE HYDROCHLORIDE
     Dosage: 1 DOSAGE FORM, QD (10MG TABLETS 1 ON - PT SAYS DOESN^T TAKE)
  5. ANAKINRA [Concomitant]
     Active Substance: ANAKINRA
     Dosage: UNK, QD (100 MG / 0.67 ML SOLUTION FOR INJECTION PRE-FILLED SYRINGES EVERY DAY IN THE MORNING - PXD
  6. Evacal-D3 [Concomitant]
     Dosage: UNK, BID (1500 MG / 400 UNIT CHEWABLE TABLETS TWICE A DAY)
  7. NYSTATIN [Concomitant]
     Active Substance: NYSTATIN
     Dosage: 1 ML, QID (100,000UNITS/ML 1ML QDS FOR 3 DAYS - PT FINISHED COURSE)
  8. LANSOPRAZOLE [Concomitant]
     Active Substance: LANSOPRAZOLE
     Dosage: 1 DOSAGE FORM, QD (30 MG GASTRO-RESISTANT CAPSULES ONE TO BE TAKEN EACH MORNING - PXD ON TTO 07/03/2
  9. HYDROXYCHLOROQUINE [Concomitant]
     Active Substance: HYDROXYCHLOROQUINE
     Dosage: 1 DOSAGE FORM, QD (200 MG TABLETS ONE TO BE TAKEN EACH DAY - PXD ON TTO 07/03/24)
  10. milkshake style Ensures [Concomitant]
     Dosage: UNK (4 MILKSHAKE STYLE ENSURES A DAY - SAYS SHE HAS LOTS OF THEM AT HOME TTO 07/03/24)

REACTIONS (1)
  - Psychotic disorder [Unknown]
